FAERS Safety Report 6952169 (Version 2)
Quarter: 2014Q1

REPORT INFORMATION
  Report Type: Spontaneous
  Country: US (occurrence: None)
  Receive Date: 20090227
  Receipt Date: 20140304
  Transmission Date: 20141002
  Serious: Yes (Hospitalization, Other)
  Sender: FDA-Public Use
  Company Number: RB-0523-2008

PATIENT
  Age: 0 Day
  Sex: Male

DRUGS (1)
  1. SUBUTEX 8 MG [Suspect]
     Indication: DRUG DEPENDENCE
     Route: 064
     Dates: start: 20070907, end: 200711

REACTIONS (2)
  - Drug withdrawal syndrome neonatal [None]
  - Foetal exposure during pregnancy [None]
